FAERS Safety Report 6543777-1 (Version None)
Quarter: 2010Q1

REPORT INFORMATION
  Report Type: 
  Country: None (occurrence: None)
  Receive Date: 20100120
  Receipt Date: 20090603
  Transmission Date: 20100710
  Serious: No
  Sender: FDA-Public Use
  Company Number: US-BRISTOL-MYERS SQUIBB COMPANY-14650014

PATIENT

DRUGS (3)
  1. CISPLATIN [Suspect]
     Indication: HEAD AND NECK CANCER
     Dosage: INTERRUPTED FOR 6 WKS;RESTARTED NOW
  2. ERBITUX [Concomitant]
     Indication: HEAD AND NECK CANCER
     Dosage: INTERRUPTED FOR 6 WKS AND RESTARTED NOW.
  3. RADIATION THERAPY [Concomitant]
     Indication: HEAD AND NECK CANCER
     Dosage: INTERRUPTED FOR 6 WKS AND STOPPED

REACTIONS (1)
  - DRUG TOXICITY [None]
